FAERS Safety Report 24453560 (Version 2)
Quarter: 2024Q4

REPORT INFORMATION
  Report Type: Report from Study
  Country: US (occurrence: US)
  Receive Date: 20241017
  Receipt Date: 20241018
  Transmission Date: 20250114
  Serious: No
  Sender: ROCHE
  Company Number: US-ROCHE-3105501

PATIENT
  Age: 63 Year
  Sex: Female

DRUGS (16)
  1. RITUXAN [Suspect]
     Active Substance: RITUXIMAB
     Indication: Interstitial lung disease
     Dosage: 1000MG IV ON DAY 0 AND DAY 14 THEN REPEAT EVERY 6 MONTHS
     Route: 041
     Dates: start: 20210807
  2. RITUXAN [Suspect]
     Active Substance: RITUXIMAB
     Indication: Dermatomyositis
     Route: 041
     Dates: start: 20230803
  3. ALBUTEROL SULFATE [Concomitant]
     Active Substance: ALBUTEROL SULFATE
  4. AZATHIOPRINE [Concomitant]
     Active Substance: AZATHIOPRINE
  5. CALCIUM CARBONATE [Concomitant]
     Active Substance: CALCIUM CARBONATE
  6. CHOLECALCIFEROL [Concomitant]
     Active Substance: CHOLECALCIFEROL
  7. HYDROCHLOROTHIAZIDE [Concomitant]
     Active Substance: HYDROCHLOROTHIAZIDE
  8. IRBESARTAN [Concomitant]
     Active Substance: IRBESARTAN
  9. LEVOTHYROXINE SODIUM [Concomitant]
     Active Substance: LEVOTHYROXINE SODIUM
  10. LORATADINE [Concomitant]
     Active Substance: LORATADINE
  11. MUPIROCIN [Concomitant]
     Active Substance: MUPIROCIN
  12. OXYGEN [Concomitant]
     Active Substance: OXYGEN
  13. PREDNISONE [Concomitant]
     Active Substance: PREDNISONE
  14. SIMVASTATIN [Concomitant]
     Active Substance: SIMVASTATIN
  15. TRAVOPROST [Concomitant]
     Active Substance: TRAVOPROST
  16. VENLAFAXINE HCL [Concomitant]
     Active Substance: VENLAFAXINE HYDROCHLORIDE

REACTIONS (3)
  - Off label use [Unknown]
  - Throat irritation [Not Recovered/Not Resolved]
  - Energy increased [Not Recovered/Not Resolved]
